FAERS Safety Report 8371905-4 (Version None)
Quarter: 2012Q2

REPORT INFORMATION
  Report Type: 
  Country: None (occurrence: None)
  Receive Date: 20120518
  Receipt Date: 20120416
  Transmission Date: 20120825
  Serious: Yes (Hospitalization)
  Sender: FDA-Public Use
  Company Number: AU-ROCHE-1063201

PATIENT
  Sex: Male
  Weight: 80 kg

DRUGS (7)
  1. OXYCONTIN [Concomitant]
     Dates: start: 19910101
  2. COPEGUS [Suspect]
     Indication: HEPATITIS C
     Dates: start: 20111216
  3. ENDEP [Concomitant]
     Dates: start: 20010101
  4. CHOLECALCIFEROL [Concomitant]
  5. PEGASYS [Suspect]
     Indication: HEPATITIS C
     Dates: start: 20111216
  6. BLINDED GS 5885 (HCV NS5A INHIBITOR) [Suspect]
     Indication: HEPATITIS C
     Route: 048
     Dates: start: 20111216
  7. DIAZEPAM [Concomitant]
     Dates: start: 20010101

REACTIONS (2)
  - ABSCESS [None]
  - PYODERMA GANGRENOSUM [None]
